FAERS Safety Report 19062646 (Version 1)
Quarter: 2021Q1

REPORT INFORMATION
  Report Type: Spontaneous
  Country: US (occurrence: US)
  Receive Date: 20210326
  Receipt Date: 20210326
  Transmission Date: 20210420
  Serious: No
  Sender: FDA-Public Use
  Company Number: US-ASTRAZENECA-2021A131600

PATIENT
  Age: 71 Year
  Sex: Female
  Weight: 52.2 kg

DRUGS (5)
  1. VITAMINS [Concomitant]
     Active Substance: VITAMINS
     Dosage: UNKNOWN
     Route: 065
  2. MINOCYCLINE [Concomitant]
     Active Substance: MINOCYCLINE HYDROCHLORIDE
     Indication: RASH
     Dosage: UNKNOWN
     Route: 065
  3. TAGRISSO [Suspect]
     Active Substance: OSIMERTINIB
     Indication: NON-SMALL CELL LUNG CANCER
     Route: 048
  4. ELIQUIS [Concomitant]
     Active Substance: APIXABAN
     Indication: THROMBOSIS
     Route: 048
  5. TYLENOL EXTRA STRENGTH [Concomitant]
     Active Substance: ACETAMINOPHEN
     Dosage: AS REQUIRED
     Route: 065

REACTIONS (6)
  - Stomatitis [Recovered/Resolved]
  - Hair growth abnormal [Not Recovered/Not Resolved]
  - Rash [Recovered/Resolved]
  - Alopecia [Not Recovered/Not Resolved]
  - Nail cuticle fissure [Recovered/Resolved with Sequelae]
  - Nail growth abnormal [Not Recovered/Not Resolved]
